FAERS Safety Report 8486149-5 (Version None)
Quarter: 2012Q3

REPORT INFORMATION
  Report Type: 
  Country: None (occurrence: None)
  Receive Date: 20120703
  Receipt Date: 20120627
  Transmission Date: 20120928
  Serious: Yes (Other)
  Sender: FDA-Public Use
  Company Number: JP-B.I. PHARMACEUTICALS,INC./RIDGEFIELD-2012-EU-03339GD

PATIENT
  Sex: Male

DRUGS (1)
  1. PRAMIPEXOLE DIHYCHLORIDE [Suspect]

REACTIONS (3)
  - HEPATITIS B [None]
  - BENIGN PROSTATIC HYPERPLASIA [None]
  - HYPERTONIC BLADDER [None]
